FAERS Safety Report 21030566 (Version 1)
Quarter: 2022Q3

REPORT INFORMATION
  Report Type: Spontaneous
  Country: US (occurrence: None)
  Receive Date: 20220701
  Receipt Date: 20220701
  Transmission Date: 20221027
  Serious: No
  Sender: FDA-Public Use
  Company Number: US-ROCHE-3020795

PATIENT
  Sex: Female
  Weight: 80.358 kg

DRUGS (18)
  1. ACTEMRA [Suspect]
     Active Substance: TOCILIZUMAB
     Indication: Rheumatoid arthritis
     Route: 058
     Dates: start: 20200302
  2. ACTEMRA [Suspect]
     Active Substance: TOCILIZUMAB
  3. ACTEMRA [Suspect]
     Active Substance: TOCILIZUMAB
  4. FOLIC ACID [Concomitant]
     Active Substance: FOLIC ACID
     Route: 048
     Dates: start: 20180517
  5. VITAMIN B12 [Concomitant]
     Active Substance: CYANOCOBALAMIN
     Dosage: STRENGTH- 1000MCG/ML
     Route: 030
  6. PREDNISONE [Concomitant]
     Active Substance: PREDNISONE
     Dosage: TAKE ONE TABLET PO QDAY FOR 5 DAYS AT THE FIRST SIGN OF FLARE
     Route: 048
     Dates: start: 20200302
  7. OMEPRAZOLE [Concomitant]
     Active Substance: OMEPRAZOLE
  8. LEVOTHYROXINE [Concomitant]
     Active Substance: LEVOTHYROXINE
     Dosage: 125MCG
     Route: 048
  9. VITAMIN D3 [Concomitant]
     Active Substance: CHOLECALCIFEROL
     Dosage: 2000 UNITS
     Dates: start: 20200302
  10. ALBUTEROL SULFATE [Concomitant]
     Active Substance: ALBUTEROL SULFATE
     Dosage: DOSE - 2.5MG/3ML - INHALE 3ML BY NEBULIZATION ROUTE 3 TIMES EVERY DAY
     Dates: start: 20200302
  11. HYDROXYCHLOROQUINE [Concomitant]
     Active Substance: HYDROXYCHLOROQUINE
     Route: 048
     Dates: start: 20180221
  12. METHOTREXATE SODIUM [Concomitant]
     Active Substance: METHOTREXATE SODIUM
     Dosage: STRENGTH - 25MG/ML, INJECT 0.8 ML (20MG) EVERY WEEK
     Route: 058
     Dates: start: 20181005
  13. ACETAMINOPHEN\CODEINE PHOSPHATE [Concomitant]
     Active Substance: ACETAMINOPHEN\CODEINE PHOSPHATE
     Dosage: ACETAMINOPHEN 300MG ;CODEINE 30MG TABLET
     Route: 048
  14. CYCLOBENZAPRINE [Concomitant]
     Active Substance: CYCLOBENZAPRINE
  15. FLUTICASONE [Concomitant]
     Active Substance: FLUTICASONE
     Dosage: FLUTICASONE 50 MCG/ACT NASAL SPRAY - SPRAY 1 TO 2 SPRAY BY INTRANASAL ROUTE EVERY DAY EACH NOSTRIL
  16. ATENOLOL [Concomitant]
     Active Substance: ATENOLOL
     Route: 048
  17. CALCIUM [Concomitant]
     Active Substance: CALCIUM
  18. GABAPENTIN [Concomitant]
     Active Substance: GABAPENTIN
     Dosage: NIGHTLY
     Route: 048

REACTIONS (2)
  - Connective tissue disorder [Unknown]
  - Arthralgia [Unknown]
